FAERS Safety Report 11031228 (Version 1)
Quarter: 2015Q2

REPORT INFORMATION
  Report Type: Spontaneous
  Country: US (occurrence: US)
  Receive Date: 20150415
  Receipt Date: 20150415
  Transmission Date: 20150821
  Serious: No
  Sender: FDA-Public Use
  Company Number: US-ASTRAZENECA-2014SE54876

PATIENT
  Age: 71 Year
  Sex: Male

DRUGS (5)
  1. SYNTHROID [Concomitant]
     Active Substance: LEVOTHYROXINE SODIUM
     Dosage: UNKNOWN
  2. PRILOSEC OTC [Suspect]
     Active Substance: OMEPRAZOLE MAGNESIUM
     Route: 048
     Dates: end: 20140722
  3. GABAPENTIN. [Concomitant]
     Active Substance: GABAPENTIN
     Dosage: UNKNOWN
  4. PREVACID [Suspect]
     Active Substance: LANSOPRAZOLE
     Dosage: ALTERNATES PRILOSEC OTC WITH PREVACID EVERY OTHER DAY
     Route: 048
  5. PROZAC [Concomitant]
     Active Substance: FLUOXETINE HYDROCHLORIDE
     Dosage: UNKNOWN

REACTIONS (2)
  - Wrong technique in drug usage process [Unknown]
  - Nausea [Not Recovered/Not Resolved]
